FAERS Safety Report 23884058 (Version 1)
Quarter: 2024Q2

REPORT INFORMATION
  Report Type: Spontaneous
  Country: US (occurrence: None)
  Receive Date: 20240521
  Receipt Date: 20240521
  Transmission Date: 20240716
  Serious: No
  Sender: FDA-Public Use
  Company Number: None

PATIENT
  Age: 35 Year
  Sex: Male
  Weight: 148.5 kg

DRUGS (1)
  1. LUMASON [Suspect]
     Active Substance: SULFUR HEXAFLUORIDE
     Indication: Endocardial disease
     Route: 040

REACTIONS (3)
  - Flushing [None]
  - Paraesthesia [None]
  - Sinus congestion [None]

NARRATIVE: CASE EVENT DATE: 20240517
